FAERS Safety Report 10134130 (Version 1)
Quarter: 2014Q2

REPORT INFORMATION
  Report Type: Spontaneous
  Country: US (occurrence: US)
  Receive Date: 20140428
  Receipt Date: 20140428
  Transmission Date: 20141212
  Serious: Yes (Hospitalization, Other)
  Sender: FDA-Public Use
  Company Number: US-DYAX CORP.-2014DX000049

PATIENT
  Age: 22 Year
  Sex: Female

DRUGS (5)
  1. KALBITOR [Suspect]
     Indication: HEREDITARY ANGIOEDEMA
     Route: 058
     Dates: start: 20140316, end: 20140316
  2. KALBITOR [Suspect]
     Route: 058
     Dates: end: 20140316
  3. FIRAZYR [Concomitant]
     Indication: HEREDITARY ANGIOEDEMA
     Route: 065
     Dates: end: 201404
  4. CINRYZE [Concomitant]
     Indication: HEREDITARY ANGIOEDEMA
     Route: 065
     Dates: end: 201404
  5. UNSPECIFIED STEROIDS [Concomitant]
     Indication: HEREDITARY ANGIOEDEMA
     Route: 065
     Dates: end: 201404

REACTIONS (3)
  - Staphylococcal sepsis [Recovering/Resolving]
  - Pneumonia [Recovering/Resolving]
  - Device related infection [Recovered/Resolved]
